FAERS Safety Report 14533473 (Version 16)
Quarter: 2019Q4

REPORT INFORMATION
  Report Type: Report from Study
  Country: MX (occurrence: MX)
  Receive Date: 20180215
  Receipt Date: 20191112
  Transmission Date: 20200122
  Serious: Yes (Disabling)
  Sender: FDA-Public Use
  Company Number: MX-ROCHE-2065123

PATIENT
  Age: 58 Year
  Sex: Male
  Weight: 62.7 kg

DRUGS (74)
  1. CLOROTRIMETON [Concomitant]
     Active Substance: CHLORPHENIRAMINE MALEATE
     Route: 065
     Dates: start: 20170913, end: 20170913
  2. CLOROTRIMETON [Concomitant]
     Active Substance: CHLORPHENIRAMINE MALEATE
     Route: 065
     Dates: start: 20180207, end: 20180207
  3. CLOROTRIMETON [Concomitant]
     Active Substance: CHLORPHENIRAMINE MALEATE
     Dosage: PREMEDICATION
     Route: 065
     Dates: start: 20181226, end: 20181226
  4. DEXAMETHASONE. [Concomitant]
     Active Substance: DEXAMETHASONE
     Route: 065
     Dates: start: 20170913, end: 20170913
  5. DEXAMETHASONE. [Concomitant]
     Active Substance: DEXAMETHASONE
     Route: 065
     Dates: start: 20170830, end: 20170830
  6. DEXAMETHASONE. [Concomitant]
     Active Substance: DEXAMETHASONE
     Route: 065
     Dates: start: 20180321, end: 20180321
  7. DEXAMETHASONE. [Concomitant]
     Active Substance: DEXAMETHASONE
     Route: 065
     Dates: start: 20180502, end: 20180502
  8. RANITIDINE. [Concomitant]
     Active Substance: RANITIDINE
     Dosage: PREMEDICATION
     Route: 065
     Dates: start: 20171227, end: 20171227
  9. RANITIDINE. [Concomitant]
     Active Substance: RANITIDINE
     Dosage: PREMEDICATION
     Route: 065
     Dates: start: 20180207, end: 20180207
  10. RANITIDINE. [Concomitant]
     Active Substance: RANITIDINE
     Route: 065
     Dates: start: 20180221, end: 20180221
  11. CIPROFLOXACIN. [Concomitant]
     Active Substance: CIPROFLOXACIN
     Indication: URINARY TRACT INFECTION
     Route: 065
     Dates: start: 20170816, end: 20170923
  12. CLOROTRIMETON [Concomitant]
     Active Substance: CHLORPHENIRAMINE MALEATE
     Route: 065
     Dates: start: 20180124, end: 20180124
  13. CLOROTRIMETON [Concomitant]
     Active Substance: CHLORPHENIRAMINE MALEATE
     Route: 065
     Dates: start: 20180221, end: 20180221
  14. CLOROTRIMETON [Concomitant]
     Active Substance: CHLORPHENIRAMINE MALEATE
     Route: 065
     Dates: start: 20180516, end: 20180516
  15. DEXAMETHASONE. [Concomitant]
     Active Substance: DEXAMETHASONE
     Route: 065
     Dates: start: 20171213, end: 20171213
  16. DEXAMETHASONE. [Concomitant]
     Active Substance: DEXAMETHASONE
     Route: 065
     Dates: start: 20171025, end: 20171025
  17. DEXAMETHASONE. [Concomitant]
     Active Substance: DEXAMETHASONE
     Route: 065
     Dates: start: 20180404, end: 20180404
  18. DEXAMETHASONE. [Concomitant]
     Active Substance: DEXAMETHASONE
     Route: 065
     Dates: start: 20180530, end: 20180530
  19. RANITIDINE. [Concomitant]
     Active Substance: RANITIDINE
     Dosage: PREMEDICATION
     Route: 065
     Dates: start: 20170816, end: 20170816
  20. RANITIDINE. [Concomitant]
     Active Substance: RANITIDINE
     Dosage: PREMEDICATION
     Route: 065
     Dates: start: 20171129, end: 20171129
  21. CIPROFLOXACIN. [Concomitant]
     Active Substance: CIPROFLOXACIN
     Indication: BACTERAEMIA
     Route: 065
     Dates: start: 20171103, end: 20171109
  22. COZAAR [Concomitant]
     Active Substance: LOSARTAN POTASSIUM
     Route: 065
     Dates: start: 20170610
  23. CLOROTRIMETON [Concomitant]
     Active Substance: CHLORPHENIRAMINE MALEATE
     Indication: PREMEDICATION
     Dosage: PREMEDICATION
     Route: 065
     Dates: start: 20171011, end: 20171011
  24. CLOROTRIMETON [Concomitant]
     Active Substance: CHLORPHENIRAMINE MALEATE
     Route: 065
     Dates: start: 20171227, end: 20171227
  25. CLOROTRIMETON [Concomitant]
     Active Substance: CHLORPHENIRAMINE MALEATE
     Route: 065
     Dates: start: 20170830, end: 20170830
  26. DEXAMETHASONE. [Concomitant]
     Active Substance: DEXAMETHASONE
     Route: 065
     Dates: start: 20180207, end: 20180207
  27. RANITIDINE. [Concomitant]
     Active Substance: RANITIDINE
     Dosage: PREMEDICATION
     Route: 065
     Dates: start: 20170802, end: 20170802
  28. RANITIDINE. [Concomitant]
     Active Substance: RANITIDINE
     Route: 065
     Dates: start: 20180530, end: 20180530
  29. VEMURAFENIB. [Suspect]
     Active Substance: VEMURAFENIB
     Indication: COLORECTAL CANCER METASTATIC
     Dosage: MOST RECENT DOSE RECEIVED ON 26/JAN/2018 (480 MG) AT 20:00
     Route: 048
     Dates: start: 20171130
  30. CLOROTRIMETON [Concomitant]
     Active Substance: CHLORPHENIRAMINE MALEATE
     Route: 065
     Dates: start: 20170927, end: 20170927
  31. CLOROTRIMETON [Concomitant]
     Active Substance: CHLORPHENIRAMINE MALEATE
     Route: 065
     Dates: start: 20170802, end: 20170802
  32. CLOROTRIMETON [Concomitant]
     Active Substance: CHLORPHENIRAMINE MALEATE
     Route: 065
     Dates: start: 20180919, end: 20180919
  33. DEXAMETHASONE. [Concomitant]
     Active Substance: DEXAMETHASONE
     Route: 065
     Dates: start: 20171227, end: 20171227
  34. DEXAMETHASONE. [Concomitant]
     Active Substance: DEXAMETHASONE
     Route: 065
     Dates: start: 20171109, end: 20171109
  35. RANITIDINE. [Concomitant]
     Active Substance: RANITIDINE
     Indication: PREMEDICATION
     Dosage: PREMEDICATION
     Route: 065
     Dates: start: 20171011, end: 20171011
  36. RANITIDINE. [Concomitant]
     Active Substance: RANITIDINE
     Dosage: PREMEDICATION
     Route: 065
     Dates: start: 20180307, end: 20180307
  37. VEMURAFENIB. [Suspect]
     Active Substance: VEMURAFENIB
     Indication: COLORECTAL CANCER METASTATIC
     Route: 048
  38. CETUXIMAB. [Suspect]
     Active Substance: CETUXIMAB
     Indication: COLORECTAL CANCER METASTATIC
     Dosage: MOST RECENT DOSE ADMINISTERED ON 24/JAN/2018 (905 MG) AT 13:54.?500 MG/M^2 VIA IV INFUSION ON DAY 1
     Route: 042
     Dates: start: 20171129
  39. CLOROTRIMETON [Concomitant]
     Active Substance: CHLORPHENIRAMINE MALEATE
     Route: 065
     Dates: start: 20171213, end: 20171213
  40. CLOROTRIMETON [Concomitant]
     Active Substance: CHLORPHENIRAMINE MALEATE
     Route: 065
     Dates: start: 20170816, end: 20170816
  41. CLOROTRIMETON [Concomitant]
     Active Substance: CHLORPHENIRAMINE MALEATE
     Route: 065
     Dates: start: 20180321, end: 20180321
  42. CLOROTRIMETON [Concomitant]
     Active Substance: CHLORPHENIRAMINE MALEATE
     Route: 065
     Dates: start: 20180530, end: 20180530
  43. DEXAMETHASONE. [Concomitant]
     Active Substance: DEXAMETHASONE
     Route: 065
     Dates: start: 20171129, end: 20171129
  44. DEXAMETHASONE. [Concomitant]
     Active Substance: DEXAMETHASONE
     Route: 065
     Dates: start: 20180307, end: 20180307
  45. RANITIDINE. [Concomitant]
     Active Substance: RANITIDINE
     Dosage: PREMEDICATION
     Route: 065
     Dates: start: 20170927, end: 20170927
  46. RANITIDINE. [Concomitant]
     Active Substance: RANITIDINE
     Dosage: PREMEDICATION
     Route: 065
     Dates: start: 20170830, end: 20170830
  47. RANITIDINE. [Concomitant]
     Active Substance: RANITIDINE
     Dosage: PREMEDICATION
     Route: 065
     Dates: start: 20180124, end: 20180124
  48. RANITIDINE. [Concomitant]
     Active Substance: RANITIDINE
     Route: 065
     Dates: start: 20180516, end: 20180516
  49. CLOROTRIMETON [Concomitant]
     Active Substance: CHLORPHENIRAMINE MALEATE
     Route: 065
     Dates: start: 20171025, end: 20171025
  50. CLOROTRIMETON [Concomitant]
     Active Substance: CHLORPHENIRAMINE MALEATE
     Route: 065
     Dates: start: 20171129, end: 20171129
  51. DEXAMETHASONE. [Concomitant]
     Active Substance: DEXAMETHASONE
     Indication: PREMEDICATION
     Route: 065
     Dates: start: 20171011, end: 20171011
  52. DEXAMETHASONE. [Concomitant]
     Active Substance: DEXAMETHASONE
     Route: 065
     Dates: start: 20170927, end: 20170927
  53. RANITIDINE. [Concomitant]
     Active Substance: RANITIDINE
     Dosage: PREMEDICATION
     Route: 065
     Dates: start: 20170913, end: 20170913
  54. RANITIDINE. [Concomitant]
     Active Substance: RANITIDINE
     Dosage: PREMEDICATION
     Route: 065
     Dates: start: 20171025, end: 20171025
  55. BENZOYL PEROXIDE. [Concomitant]
     Active Substance: BENZOYL PEROXIDE
     Indication: ECZEMA
     Route: 065
     Dates: start: 20180803, end: 20180803
  56. IBUPROFEN. [Concomitant]
     Active Substance: IBUPROFEN
     Indication: OEDEMA PERIPHERAL
     Route: 065
     Dates: start: 20181114, end: 20181119
  57. FUSIDIC ACID [Concomitant]
     Active Substance: FUSIDIC ACID
     Route: 065
     Dates: start: 20181017, end: 20181022
  58. 5-FLUOROURACIL [FLUOROURACIL] [Suspect]
     Active Substance: FLUOROURACIL
     Indication: COLORECTAL CANCER METASTATIC
     Dosage: MOST RECENT DOSE PRIOR TO EVENT: 24/JAN/2018 AT 15 17?1600-2400 MG/M^2 5-FU VIA 46-HOUR IV INFUSION
     Route: 042
     Dates: start: 20171129
  59. CLOROTRIMETON [Concomitant]
     Active Substance: CHLORPHENIRAMINE MALEATE
     Route: 065
     Dates: start: 20171109, end: 20171109
  60. CLOROTRIMETON [Concomitant]
     Active Substance: CHLORPHENIRAMINE MALEATE
     Route: 065
     Dates: start: 20180321, end: 20180321
  61. CLOROTRIMETON [Concomitant]
     Active Substance: CHLORPHENIRAMINE MALEATE
     Route: 065
     Dates: start: 20180404, end: 20180404
  62. DEXAMETHASONE. [Concomitant]
     Active Substance: DEXAMETHASONE
     Route: 065
     Dates: start: 20170802, end: 20170802
  63. DEXAMETHASONE. [Concomitant]
     Active Substance: DEXAMETHASONE
     Route: 065
     Dates: start: 20180221, end: 20180221
  64. RANITIDINE. [Concomitant]
     Active Substance: RANITIDINE
     Route: 065
     Dates: start: 20180321, end: 20180321
  65. RANITIDINE. [Concomitant]
     Active Substance: RANITIDINE
     Route: 065
     Dates: start: 20180502, end: 20180502
  66. AUGMENTIN [Concomitant]
     Active Substance: AMOXICILLIN\CLAVULANATE POTASSIUM
     Indication: BACTERAEMIA
     Route: 065
     Dates: start: 20171027, end: 20171030
  67. BETAMETHASONE. [Concomitant]
     Active Substance: BETAMETHASONE
     Indication: ECZEMA
     Route: 065
     Dates: start: 20180803, end: 20180810
  68. AMOXICILLIN. [Concomitant]
     Active Substance: AMOXICILLIN
     Indication: PARONYCHIA
     Route: 065
     Dates: start: 20181017, end: 20181024
  69. LEUCOVORIN CALCIUM. [Suspect]
     Active Substance: LEUCOVORIN CALCIUM
     Indication: COLORECTAL CANCER METASTATIC
     Dosage: 400 MG/M^2 VIA 2-HOUR INFUSION ON DAY 1 OF EVERY 2-WEEK CYCLE
     Route: 042
     Dates: start: 20171129
  70. DEXAMETHASONE. [Concomitant]
     Active Substance: DEXAMETHASONE
     Route: 065
     Dates: start: 20170816, end: 20170816
  71. DEXAMETHASONE. [Concomitant]
     Active Substance: DEXAMETHASONE
     Route: 065
     Dates: start: 20180124, end: 20180124
  72. RANITIDINE. [Concomitant]
     Active Substance: RANITIDINE
     Dosage: PREMEDICATION
     Route: 065
     Dates: start: 20171113, end: 20171113
  73. RANITIDINE. [Concomitant]
     Active Substance: RANITIDINE
     Dosage: PREMEDICATION
     Route: 065
     Dates: start: 20171109, end: 20171109
  74. RANITIDINE. [Concomitant]
     Active Substance: RANITIDINE
     Route: 065
     Dates: start: 20180404, end: 20180404

REACTIONS (1)
  - Muscular weakness [Recovering/Resolving]

NARRATIVE: CASE EVENT DATE: 20180127
